FAERS Safety Report 13563887 (Version 1)
Quarter: 2017Q2

REPORT INFORMATION
  Report Type: Spontaneous
  Country: CH (occurrence: CH)
  Receive Date: 20170519
  Receipt Date: 20170519
  Transmission Date: 20170830
  Serious: Yes (Other)
  Sender: FDA-Public Use
  Company Number: CH-JNJFOC-20170515167

PATIENT
  Age: 20 Year
  Sex: Male

DRUGS (1)
  1. REMICADE [Suspect]
     Active Substance: INFLIXIMAB
     Indication: PRODUCT USED FOR UNKNOWN INDICATION
     Dosage: 4 AMPULES??2ND INFUSION
     Route: 042

REACTIONS (3)
  - Flushing [Recovered/Resolved]
  - Respiratory depression [Unknown]
  - Infusion related reaction [Unknown]
